FAERS Safety Report 22815530 (Version 2)
Quarter: 2024Q3

REPORT INFORMATION
  Report Type: Report from Study
  Country: KR (occurrence: KR)
  Receive Date: 20230811
  Receipt Date: 20240821
  Transmission Date: 20241016
  Serious: Yes (Other)
  Sender: RANBAXY
  Company Number: KP-SUN PHARMACEUTICAL INDUSTRIES LTD-2023R1-404071

PATIENT
  Age: 11 Year
  Sex: Female

DRUGS (1)
  1. OXCARBAZEPINE [Suspect]
     Active Substance: OXCARBAZEPINE
     Indication: Epilepsy
     Dosage: UNK
     Route: 065

REACTIONS (1)
  - Hypothyroidism [Unknown]
